FAERS Safety Report 25349929 (Version 1)
Quarter: 2025Q2

REPORT INFORMATION
  Report Type: Spontaneous
  Country: US (occurrence: US)
  Receive Date: 20250523
  Receipt Date: 20250523
  Transmission Date: 20250716
  Serious: Yes (Other)
  Sender: ROCHE
  Company Number: US-ROCHE-10000289003

PATIENT
  Sex: Female

DRUGS (10)
  1. XOLAIR PFS [Suspect]
     Active Substance: OMALIZUMAB
     Indication: Urticaria
     Dosage: 2 ML
     Route: 058
  2. XOLAIR PFS [Suspect]
     Active Substance: OMALIZUMAB
  3. TRAZODONE HC TAB 300MG [Concomitant]
  4. Aspirin che 81 mg [Concomitant]
  5. Diazepam tab 10 mg [Concomitant]
  6. levothyroxin 300mcg [Concomitant]
  7. Lisinopril tab 40 mg [Concomitant]
  8. Metoprolol s TB2 200 mg [Concomitant]
  9. Pantoprazole SOL 40 mg [Concomitant]
  10. ZYRTEC ALLER CAP 10MG [Concomitant]

REACTIONS (6)
  - Pain [Not Recovered/Not Resolved]
  - Arthralgia [Not Recovered/Not Resolved]
  - COVID-19 [Not Recovered/Not Resolved]
  - Mast cell activation syndrome [Not Recovered/Not Resolved]
  - Flushing [Not Recovered/Not Resolved]
  - Anaphylactic reaction [Not Recovered/Not Resolved]
